FAERS Safety Report 24983541 (Version 2)
Quarter: 2025Q3

REPORT INFORMATION
  Report Type: Spontaneous
  Country: CA (occurrence: CA)
  Receive Date: 20250219
  Receipt Date: 20250809
  Transmission Date: 20251021
  Serious: Yes (Other)
  Sender: ALEXION PHARMACEUTICALS
  Company Number: CA-AstraZeneca-2020SF26920

PATIENT
  Age: 32 Year
  Sex: Female

DRUGS (6)
  1. PULMICORT TURBUHALER [Suspect]
     Active Substance: BUDESONIDE
     Indication: Product used for unknown indication
  2. MONTELUKAST [Suspect]
     Active Substance: MONTELUKAST
     Route: 065
  3. ALBUTEROL [Suspect]
     Active Substance: ALBUTEROL
     Indication: Product used for unknown indication
     Route: 065
  4. DYMISTA [Suspect]
     Active Substance: AZELASTINE HYDROCHLORIDE\FLUTICASONE PROPIONATE
     Indication: Product used for unknown indication
     Route: 065
  5. PREDNISONE [Suspect]
     Active Substance: PREDNISONE
     Indication: Product used for unknown indication
     Route: 065
  6. FLUTICASONE FUROATE [Suspect]
     Active Substance: FLUTICASONE FUROATE
     Indication: Product used for unknown indication
     Route: 065

REACTIONS (17)
  - Abdominal discomfort [Unknown]
  - Allergy to plants [Unknown]
  - Anosmia [Unknown]
  - NSAID exacerbated respiratory disease [Unknown]
  - Asthma [Unknown]
  - Full blood count abnormal [Unknown]
  - Conjunctivitis allergic [Unknown]
  - Drug intolerance [Unknown]
  - Eosinophilic granulomatosis with polyangiitis [Unknown]
  - Hypoaesthesia [Unknown]
  - Malaise [Unknown]
  - Nasal congestion [Unknown]
  - Nasal polyps [Unknown]
  - Seasonal allergy [Unknown]
  - Upper respiratory tract infection [Unknown]
  - Therapeutic product effect incomplete [Unknown]
  - Conjunctivitis allergic [Unknown]
